FAERS Safety Report 5054085-2 (Version None)
Quarter: 2006Q3

REPORT INFORMATION
  Report Type: 
  Country: None (occurrence: None)
  Receive Date: 20060713
  Receipt Date: 20060711
  Transmission Date: 20061208
  Serious: Yes (Death, Hospitalization)
  Sender: FDA-Public Use
  Company Number: 2006S1000134

PATIENT
  Age: 7 Day
  Sex: Female

DRUGS (16)
  1. INOMAX [Suspect]
     Indication: LUNG DISORDER
     Dosage: 5 PPM; INH_GAS; INH, CONT INH
     Route: 055
     Dates: start: 20060626
  2. INOMAX [Suspect]
     Indication: PROPHYLAXIS
     Dosage: 5 PPM; INH_GAS; INH, CONT INH
     Route: 055
     Dates: start: 20060626
  3. CAFFEINE (CAFFEINE) [Concomitant]
  4. MICONAZOLE [Concomitant]
  5. VANCOMYCIN [Concomitant]
  6. CEFOTAXIME SODIUM [Concomitant]
  7. METRONIDAZOLE [Concomitant]
  8. FENTANYL [Concomitant]
  9. INSULIN [Concomitant]
  10. IBUPROFEN [Concomitant]
  11. ATROPINE [Concomitant]
  12. AMPICILLIN [Concomitant]
  13. ACETAMINOPHEN [Concomitant]
  14. FLUCONAZOLE [Concomitant]
  15. SODIUM BICARBONATE IN PLASTIC CONTAINER [Concomitant]
  16. FENTANYL [Concomitant]

REACTIONS (12)
  - CANDIDA SEPSIS [None]
  - CAPILLARY LEAK SYNDROME [None]
  - CEREBRAL VENTRICLE DILATATION [None]
  - DISSEMINATED INTRAVASCULAR COAGULATION [None]
  - HYPOXIA [None]
  - INTESTINAL PERFORATION [None]
  - INTRAVENTRICULAR HAEMORRHAGE NEONATAL [None]
  - NEONATAL DISORDER [None]
  - NEONATAL HYPOTENSION [None]
  - NEONATAL INFECTION [None]
  - PATENT DUCTUS ARTERIOSUS [None]
  - RENAL FAILURE [None]
